FAERS Safety Report 15651948 (Version 1)
Quarter: 2018Q4

REPORT INFORMATION
  Report Type: Report from Study
  Country: FR (occurrence: FR)
  Receive Date: 20181123
  Receipt Date: 20181123
  Transmission Date: 20190205
  Serious: Yes (Hospitalization, Other)
  Sender: FDA-Public Use
  Company Number: FR-PFIZER INC-2017362017

PATIENT
  Age: 52 Year
  Sex: Male
  Weight: 96 kg

DRUGS (7)
  1. INLYTA [Suspect]
     Active Substance: AXITINIB
     Indication: RENAL CANCER
     Dosage: 5 MG, UNK
     Route: 048
     Dates: start: 20160808, end: 20160823
  2. SUTENT [Suspect]
     Active Substance: SUNITINIB MALATE
     Indication: RENAL CANCER
     Dosage: 50 MG, DAILY (4 WEEKS OUT OF 6)
     Dates: start: 20151005
  3. SUTENT [Suspect]
     Active Substance: SUNITINIB MALATE
     Dosage: 37.5 MG, CYCLIC 2/1
     Dates: start: 20160404, end: 20160711
  4. SUTENT [Suspect]
     Active Substance: SUNITINIB MALATE
     Dosage: REDUCED DOSE, CYCLIC
     Dates: start: 201612
  5. INLYTA [Suspect]
     Active Substance: AXITINIB
     Dosage: 3 MG, 2X/DAY
     Route: 048
     Dates: start: 20161128
  6. SUTENT [Suspect]
     Active Substance: SUNITINIB MALATE
     Dosage: INCREASED DOSE, CYCLIC
     Dates: start: 201608
  7. INLYTA [Suspect]
     Active Substance: AXITINIB
     Dosage: 7 MG, 2X/DAY
     Route: 048
     Dates: start: 20160823, end: 20161128

REACTIONS (28)
  - Myalgia [Recovered/Resolved]
  - Diarrhoea [Recovered/Resolved]
  - Tooth infection [Recovered/Resolved]
  - Dysphagia [Recovered/Resolved]
  - Oropharyngeal pain [Recovered/Resolved]
  - Dysuria [Recovered/Resolved]
  - Asthenia [Recovered/Resolved]
  - Decreased appetite [Recovered/Resolved]
  - Angular cheilitis [Recovered/Resolved]
  - Decreased appetite [Recovered/Resolved]
  - Rhinitis [Recovered/Resolved]
  - Haemoptysis [Recovered/Resolved]
  - Mucosal inflammation [Recovered/Resolved]
  - Vertigo [Recovered/Resolved]
  - Headache [Recovered/Resolved]
  - Prostatitis [Recovered/Resolved]
  - Pruritus [Recovered/Resolved]
  - Hypertension [Recovered/Resolved]
  - Decreased appetite [Recovered/Resolved]
  - Radiation necrosis [Unknown]
  - Vertigo [Recovered/Resolved]
  - Nausea [Recovered/Resolved]
  - Headache [Recovered/Resolved]
  - Asthenia [Recovered/Resolved]
  - Dysphonia [Recovered/Resolved]
  - Scrotal inflammation [Recovered/Resolved]
  - Mucosal inflammation [Recovered/Resolved]
  - Diarrhoea [Recovered/Resolved]

NARRATIVE: CASE EVENT DATE: 20151019
